FAERS Safety Report 12416604 (Version 1)
Quarter: 2016Q2

REPORT INFORMATION
  Report Type: Spontaneous
  Country: JP (occurrence: JP)
  Receive Date: 20160530
  Receipt Date: 20160530
  Transmission Date: 20160815
  Serious: Yes (Other)
  Sender: FDA-Public Use
  Company Number: JP-JNJFOC-20130600833

PATIENT
  Sex: Female

DRUGS (1)
  1. RISPERDAL [Suspect]
     Active Substance: RISPERIDONE
     Indication: RELAXATION THERAPY
     Route: 048

REACTIONS (4)
  - Self injurious behaviour [Unknown]
  - Hunger [Unknown]
  - Blood triglycerides increased [Unknown]
  - Condition aggravated [Unknown]
